FAERS Safety Report 11945126 (Version 1)
Quarter: 2016Q1

REPORT INFORMATION
  Report Type: Spontaneous
  Country: CA (occurrence: CA)
  Receive Date: 20160125
  Receipt Date: 20160125
  Transmission Date: 20160526
  Serious: Yes (Other)
  Sender: FDA-Public Use
  Company Number: CA-TEVA-627779ACC

PATIENT
  Age: 24 Year
  Sex: Female

DRUGS (1)
  1. CLARITHROMYCIN. [Suspect]
     Active Substance: CLARITHROMYCIN
     Indication: PHARYNGITIS
     Dosage: 1000 MILLIGRAM DAILY;
     Route: 065

REACTIONS (7)
  - Panic attack [Unknown]
  - Mental disorder [Unknown]
  - Crying [Unknown]
  - Thunderclap headache [Unknown]
  - Abnormal dreams [Unknown]
  - Insomnia [Unknown]
  - Nausea [Unknown]
